FAERS Safety Report 7527353-X (Version None)
Quarter: 2011Q2

REPORT INFORMATION
  Report Type: 
  Country: None (occurrence: None)
  Receive Date: 20110607
  Receipt Date: 20110110
  Transmission Date: 20111010
  Serious: Yes (Other)
  Sender: FDA-Public Use
  Company Number: US-BAYER-201026716NA

PATIENT
  Age: 28 Year
  Sex: Female
  Weight: 77.273 kg

DRUGS (9)
  1. ZANTAC [Concomitant]
     Indication: DYSPEPSIA
  2. MOTRIN [Concomitant]
     Indication: PAIN
     Dosage: 4 DAILY
  3. YAZ [Suspect]
     Indication: PREMENSTRUAL SYNDROME
     Dosage: UNK UNK, QD
     Route: 048
     Dates: start: 20070101, end: 20090101
  4. YASMIN [Suspect]
     Dosage: UNK
     Route: 048
  5. PREVACID [Concomitant]
     Indication: DYSPEPSIA
  6. YASMIN [Suspect]
     Indication: PREMENSTRUAL SYNDROME
     Dosage: UNK
     Route: 048
     Dates: start: 20020101, end: 20070101
  7. YASMIN [Suspect]
     Indication: ORAL CONTRACEPTION
  8. YAZ [Suspect]
     Indication: ORAL CONTRACEPTION
  9. YAZ [Suspect]
     Dosage: UNK
     Route: 048

REACTIONS (5)
  - PAIN [None]
  - INJURY [None]
  - EMOTIONAL DISTRESS [None]
  - ANXIETY [None]
  - GALLBLADDER DISORDER [None]
